FAERS Safety Report 21449847 (Version 1)
Quarter: 2022Q4

REPORT INFORMATION
  Report Type: Spontaneous
  Country: EG (occurrence: None)
  Receive Date: 20221013
  Receipt Date: 20221013
  Transmission Date: 20230113
  Serious: Yes (Other)
  Sender: FDA-Public Use
  Company Number: EG-Hikma Pharmaceuticals USA Inc.-EG-H14001-22-02588

PATIENT
  Sex: Female

DRUGS (2)
  1. PACLITAXEL [Suspect]
     Active Substance: PACLITAXEL
     Indication: Ovarian cancer metastatic
     Dosage: UNKNOWN
     Route: 065
     Dates: start: 20220827
  2. CARBOPLATIN [Concomitant]
     Active Substance: CARBOPLATIN
     Indication: Product used for unknown indication
     Dosage: UNKNOWN
     Route: 065

REACTIONS (3)
  - Tachypnoea [Not Recovered/Not Resolved]
  - Tachycardia [Not Recovered/Not Resolved]
  - Hypotension [Not Recovered/Not Resolved]
